FAERS Safety Report 8507362-4 (Version None)
Quarter: 2012Q3

REPORT INFORMATION
  Report Type: 
  Country: None (occurrence: None)
  Receive Date: 20120712
  Receipt Date: 20120709
  Transmission Date: 20120928
  Serious: Yes (Death)
  Sender: FDA-Public Use
  Company Number: US-ABBOTT-12P-163-0935760-00

PATIENT
  Sex: Female
  Weight: 83.99 kg

DRUGS (36)
  1. HUMIRA [Suspect]
     Indication: OSTEOARTHRITIS
     Dates: start: 20090728, end: 20110311
  2. CENESTIN [Concomitant]
     Dates: start: 20110311
  3. ASCORBIC ACID [Concomitant]
     Dates: start: 20100127
  4. AVAPRO [Concomitant]
     Indication: PRODUCT USED FOR UNKNOWN INDICATION
     Dates: start: 20050912
  5. BELLAMINE S [Concomitant]
     Indication: PRODUCT USED FOR UNKNOWN INDICATION
     Dosage: 2 TABS PER DAY
     Dates: start: 20050912
  6. CELEBREX [Concomitant]
     Indication: PRODUCT USED FOR UNKNOWN INDICATION
     Dates: start: 20050925
  7. ENTERIC ASPIRIN [Concomitant]
     Dates: start: 20090728
  8. CENESTIN [Concomitant]
     Indication: PRODUCT USED FOR UNKNOWN INDICATION
     Dates: start: 20050912
  9. FOLIC ACID [Concomitant]
     Dates: start: 20101217
  10. FISH OIL [Concomitant]
     Indication: PRODUCT USED FOR UNKNOWN INDICATION
     Dates: start: 20050912
  11. CA, VIT  D, NG, ZN [Concomitant]
     Indication: PRODUCT USED FOR UNKNOWN INDICATION
     Dates: start: 20050912
  12. MULT VIT [Concomitant]
     Indication: PRODUCT USED FOR UNKNOWN INDICATION
     Dates: start: 20050912
  13. METHOTREXATE [Concomitant]
     Dosage: 3 TABS PER WEEK
  14. NITROFUCAN MCG [Concomitant]
     Indication: PRODUCT USED FOR UNKNOWN INDICATION
     Dates: start: 20060925
  15. METOPROLOL TARTRATE [Concomitant]
     Dates: start: 20100127
  16. HYDROCHLOROTHIAZIDE [Concomitant]
     Dates: start: 20060925
  17. ACIPHEX [Concomitant]
     Dates: start: 20090728
  18. ACIPHEX [Concomitant]
     Dates: start: 20110311
  19. FOLIC ACID [Concomitant]
     Indication: PRODUCT USED FOR UNKNOWN INDICATION
     Dates: start: 20050912
  20. ENTERIC ASPIRIN [Concomitant]
     Indication: PRODUCT USED FOR UNKNOWN INDICATION
     Dates: start: 20050912
  21. HUMIRA [Suspect]
     Indication: RHEUMATOID ARTHRITIS
     Route: 058
     Dates: start: 20110311, end: 20120501
  22. FOLIC ACID [Concomitant]
     Dates: start: 20090728
  23. ASCORBIC ACID [Concomitant]
     Indication: PRODUCT USED FOR UNKNOWN INDICATION
     Dates: start: 20050912
  24. ACIPHEX [Concomitant]
     Indication: PRODUCT USED FOR UNKNOWN INDICATION
     Dates: start: 20050912
  25. GLUCOSAMINE + CHONDROITIN [Concomitant]
     Indication: PRODUCT USED FOR UNKNOWN INDICATION
     Dosage: DAILY, 500/400
     Dates: start: 20050912
  26. METHOTREXATE [Concomitant]
     Dates: start: 20090728
  27. NITROSTAT [Concomitant]
     Indication: PRODUCT USED FOR UNKNOWN INDICATION
     Dates: start: 20100127
  28. HYDROCHLOROTHIAZIDE [Concomitant]
     Indication: PRODUCT USED FOR UNKNOWN INDICATION
     Dates: start: 20050912
  29. CENESTIN [Concomitant]
     Dates: start: 20090728, end: 20101217
  30. METHOTREXATE [Concomitant]
     Indication: PRODUCT USED FOR UNKNOWN INDICATION
     Dates: start: 20060531
  31. METHOTREXATE [Concomitant]
     Dates: start: 20060925
  32. AVALIDE [Concomitant]
     Indication: PRODUCT USED FOR UNKNOWN INDICATION
     Dosage: 150/12.5
     Dates: start: 20090728
  33. METOPROLOL TARTRATE [Concomitant]
     Indication: PRODUCT USED FOR UNKNOWN INDICATION
     Dosage: 25 MG AM, 20 MG PM
     Dates: start: 20091027
  34. LEVOTHYROXINE SODIUM [Concomitant]
     Indication: PRODUCT USED FOR UNKNOWN INDICATION
     Dates: start: 20101217
  35. ENTERIC ASPIRIN [Concomitant]
     Dates: start: 20110311
  36. MOBIC [Concomitant]
     Indication: PRODUCT USED FOR UNKNOWN INDICATION
     Dates: start: 20090728

REACTIONS (1)
  - CARDIAC FAILURE [None]
